FAERS Safety Report 8489848-4 (Version None)
Quarter: 2012Q3

REPORT INFORMATION
  Report Type: 
  Country: None (occurrence: None)
  Receive Date: 20120705
  Receipt Date: 20120629
  Transmission Date: 20120928
  Serious: Yes (Hospitalization)
  Sender: FDA-Public Use
  Company Number: DE-ACTELION-A-US2012-66185

PATIENT

DRUGS (1)
  1. VENTAVIS [Suspect]
     Indication: PULMONARY ARTERIAL HYPERTENSION
     Dosage: DAILY DOSE 30 UG
     Route: 055
     Dates: start: 20091022

REACTIONS (2)
  - PULMONARY EMBOLISM [None]
  - TRANSFUSION [None]
